FAERS Safety Report 10017826 (Version 2)
Quarter: 2014Q2

REPORT INFORMATION
  Report Type: Spontaneous
  Country: US (occurrence: US)
  Receive Date: 20140318
  Receipt Date: 20140501
  Transmission Date: 20141212
  Serious: Yes (Other)
  Sender: FDA-Public Use
  Company Number: US-ASTELLAS-2014US002513

PATIENT
  Age: 13 Year
  Sex: Male

DRUGS (4)
  1. AMBISOME [Suspect]
     Indication: PRODUCT USED FOR UNKNOWN INDICATION
     Route: 042
     Dates: start: 20140220, end: 20140220
  2. AMBISOME [Suspect]
     Route: 042
     Dates: start: 20140306, end: 20140306
  3. BENADRYL                           /00000402/ [Concomitant]
     Indication: PREMEDICATION
     Route: 048
     Dates: start: 20140220
  4. TYLENOL                            /00020001/ [Concomitant]
     Indication: PREMEDICATION
     Route: 048

REACTIONS (3)
  - Oxygen saturation decreased [Recovered/Resolved]
  - Dyspnoea [Recovered/Resolved]
  - Erythema [Recovered/Resolved]
